FAERS Safety Report 13524854 (Version 1)
Quarter: 2017Q2

REPORT INFORMATION
  Report Type: Spontaneous
  Country: US (occurrence: US)
  Receive Date: 20170508
  Receipt Date: 20170508
  Transmission Date: 20170830
  Serious: No
  Sender: FDA-Public Use
  Company Number: US-ROCHE-1125621

PATIENT
  Sex: Female
  Weight: 78 kg

DRUGS (15)
  1. LEUCOVORIN. [Concomitant]
     Active Substance: LEUCOVORIN
  2. AVASTIN [Suspect]
     Active Substance: BEVACIZUMAB
     Indication: HAEMATOLOGICAL MALIGNANCY
  3. CYTOXAN [Concomitant]
     Active Substance: CYCLOPHOSPHAMIDE
  4. FASLODEX [Concomitant]
     Active Substance: FULVESTRANT
  5. THIOTEPA. [Concomitant]
     Active Substance: THIOTEPA
  6. TAXOL [Concomitant]
     Active Substance: PACLITAXEL
  7. CARBOPLATIN. [Concomitant]
     Active Substance: CARBOPLATIN
  8. VELBAN [Concomitant]
     Active Substance: VINBLASTINE SULFATE
  9. GEMZAR [Concomitant]
     Active Substance: GEMCITABINE HYDROCHLORIDE
  10. MTX [Concomitant]
     Active Substance: METHOTREXATE SODIUM
  11. 5-FU [Concomitant]
     Active Substance: FLUOROURACIL
  12. ADRIAMYCIN [Concomitant]
     Active Substance: DOXORUBICIN HYDROCHLORIDE
  13. HERCEPTIN [Concomitant]
     Active Substance: TRASTUZUMAB
     Route: 065
     Dates: start: 200505, end: 200507
  14. TAXOTERE [Concomitant]
     Active Substance: DOCETAXEL
     Route: 065
     Dates: start: 200505, end: 200507
  15. AVASTIN [Suspect]
     Active Substance: BEVACIZUMAB
     Indication: BREAST CANCER FEMALE
     Route: 065

REACTIONS (2)
  - Neuropathy peripheral [Unknown]
  - Disease progression [Unknown]
